FAERS Safety Report 9432431 (Version 2)
Quarter: 2013Q3

REPORT INFORMATION
  Report Type: Spontaneous
  Country: IT (occurrence: IT)
  Receive Date: 20130731
  Receipt Date: 20130814
  Transmission Date: 20140515
  Serious: Yes (Hospitalization)
  Sender: FDA-Public Use
  Company Number: IT-PFIZER INC-2013217097

PATIENT
  Age: 53 Year
  Sex: Female

DRUGS (4)
  1. ATORVASTATIN CALCIUM [Suspect]
     Indication: ACUTE CORONARY SYNDROME
     Dosage: UNK
     Dates: start: 2012, end: 2012
  2. CLOPIDOGREL [Suspect]
     Indication: ANTIPLATELET THERAPY
     Dosage: 75 MG DAILY
     Dates: start: 2012, end: 2012
  3. PANTOPRAZOLE [Suspect]
     Indication: ACUTE CORONARY SYNDROME
     Dosage: UNK
     Dates: start: 2012, end: 2012
  4. ACETYLSALICYLIC ACID [Suspect]
     Indication: ACUTE CORONARY SYNDROME
     Dosage: UNK
     Dates: start: 2012, end: 2012

REACTIONS (6)
  - Hepatitis [Unknown]
  - Asthenia [Unknown]
  - Arthralgia [Unknown]
  - Rash papular [Unknown]
  - Urine abnormality [Unknown]
  - Treatment noncompliance [Unknown]
